FAERS Safety Report 7775203-9 (Version None)
Quarter: 2011Q3

REPORT INFORMATION
  Report Type: 
  Country: None (occurrence: None)
  Receive Date: 20110921
  Receipt Date: 20110908
  Transmission Date: 20111222
  Serious: Yes (Death)
  Sender: FDA-Public Use
  Company Number: TCI2011A04300

PATIENT
  Age: 80 Year
  Sex: Female

DRUGS (7)
  1. IMURAN (AZATHIORINE) [Concomitant]
  2. PREDNISOLONE [Concomitant]
  3. SEDIEL (TANDOSPIRONE CITRATE) [Concomitant]
  4. HUMULN R (INSULIN HUMAN) [Concomitant]
  5. AMIKACIN SULFATE [Concomitant]
  6. FULCALIO 3 (VITAMINS NOS, AMINO ACIDS NOS, ELECTROLYTES NOS, CARBOHYDR [Concomitant]
  7. ROZEREM [Suspect]
     Indication: INSOMNIA
     Dosage: 8 MG (8 MG, 1 IN 1 D); NASOGASTRIC TUBE
     Dates: start: 20110704, end: 20110718

REACTIONS (3)
  - PNEUMONIA ASPIRATION [None]
  - HYPOPHAGIA [None]
  - RESPIRATORY FAILURE [None]
